FAERS Safety Report 10930662 (Version 2)
Quarter: 2015Q2

REPORT INFORMATION
  Report Type: Spontaneous
  Country: FR (occurrence: FR)
  Receive Date: 20150319
  Receipt Date: 20150407
  Transmission Date: 20150821
  Serious: Yes (Hospitalization)
  Sender: FDA-Public Use
  Company Number: FR-WATSON-2015-06069

PATIENT
  Age: 53 Year
  Sex: Male

DRUGS (7)
  1. TRELSTAR [Suspect]
     Active Substance: TRIPTORELIN PAMOATE
     Indication: PARAPHILIA
     Dosage: 1 DF, IN THREE MONTHS
     Route: 030
     Dates: start: 20140630, end: 20141224
  2. GARDENAL                           /00023201/ [Suspect]
     Active Substance: PHENOBARBITAL
     Indication: EPILEPSY
     Dosage: 150 MG, UNK
     Route: 048
  3. DIPIPERON [Concomitant]
     Active Substance: PIPAMPERONE
     Indication: ABNORMAL BEHAVIOUR
     Dosage: UNK, UNKNOWN
     Route: 048
  4. NOCTAMIDE [Concomitant]
     Active Substance: LORMETAZEPAM
     Indication: PRODUCT USED FOR UNKNOWN INDICATION
     Dosage: 2 MG, UNKNOWN
     Route: 048
  5. DEPAKINE CHRONO [Suspect]
     Active Substance: VALPROATE SODIUM
     Indication: EPILEPSY
     Dosage: 1500 MG, UNKNOWN
     Route: 048
  6. TERCIAN                            /00759301/ [Concomitant]
     Active Substance: CYAMEMAZINE
     Indication: ABNORMAL BEHAVIOUR
     Dosage: 105 GTT DROP(S), UNKNOWN
     Route: 048
  7. LASILIX                            /00032601/ [Suspect]
     Active Substance: FUROSEMIDE
     Indication: EPILEPSY
     Dosage: 20 MG, UNKNOWN
     Route: 048
     Dates: start: 2011

REACTIONS (2)
  - Osteoporosis [Not Recovered/Not Resolved]
  - Osteoporotic fracture [Recovered/Resolved with Sequelae]

NARRATIVE: CASE EVENT DATE: 20141201
